FAERS Safety Report 9049840 (Version 1)
Quarter: 2013Q1

REPORT INFORMATION
  Report Type: Spontaneous
  Country: US (occurrence: US)
  Receive Date: 20130205
  Receipt Date: 20130205
  Transmission Date: 20140127
  Serious: No
  Sender: FDA-Public Use
  Company Number: US-009507513-1302USA000046

PATIENT
  Age: 60 Year
  Sex: Female

DRUGS (4)
  1. ASMANEX TWISTHALER [Suspect]
     Indication: ASTHMA
     Dosage: 220 MICROGRAM, ONCE DAILY IN THE EVENING
     Route: 055
  2. VERAPAMIL [Concomitant]
  3. FLUTICASONE [Concomitant]
  4. MONTELUKAST SODIUM [Concomitant]
     Route: 048

REACTIONS (1)
  - Alopecia [Not Recovered/Not Resolved]
